FAERS Safety Report 5541665-0 (Version None)
Quarter: 2007Q4

REPORT INFORMATION
  Report Type: 
  Country: None (occurrence: None)
  Receive Date: 20071210
  Receipt Date: 20071130
  Transmission Date: 20080405
  Serious: Yes (Life-Threatening, Other)
  Sender: FDA-Public Use
  Company Number: PHHY2007BR00693

PATIENT
  Age: 68 Year
  Sex: Female

DRUGS (4)
  1. GALVUS MET [Suspect]
     Indication: DIABETES MELLITUS
     Route: 048
  2. AMARYL [Concomitant]
     Route: 048
     Dates: start: 20030101
  3. EUTHYROX [Concomitant]
     Route: 048
     Dates: start: 20040101
  4. METFORMIN HCL [Concomitant]
     Route: 048
     Dates: start: 20040101

REACTIONS (2)
  - DRUG INEFFECTIVE [None]
  - HYPOGLYCAEMIC COMA [None]
